FAERS Safety Report 10915920 (Version 1)
Quarter: 2015Q1

REPORT INFORMATION
  Report Type: Spontaneous
  Country: US (occurrence: None)
  Receive Date: 20150311
  Receipt Date: 20150311
  Transmission Date: 20150721
  Serious: No
  Sender: FDA-Public Use
  Company Number: None

PATIENT
  Age: 81 Year
  Sex: Female
  Weight: 54.43 kg

DRUGS (12)
  1. LISINOPNIL? [Concomitant]
  2. VITAMIN D [Concomitant]
     Active Substance: CHOLECALCIFEROL
  3. EVISTA [Concomitant]
     Active Substance: RALOXIFENE HYDROCHLORIDE
  4. CRESTOR [Concomitant]
     Active Substance: ROSUVASTATIN CALCIUM
  5. BASPRIM [Concomitant]
  6. B-100 COMPLEX [Concomitant]
     Active Substance: DEXPANTHENOL\NIACINAMIDE\PYRIDOXINE HYDROCHLORIDE\RIBOFLAVIN 5^-PHOSPHATE SODIUM\THIAMINE HYDROCHLORIDE
  7. TOPROL XL [Concomitant]
     Active Substance: METOPROLOL SUCCINATE
  8. COD SILVER OIL [Concomitant]
  9. IRON [Concomitant]
     Active Substance: IRON
  10. COQ10 [Concomitant]
     Active Substance: UBIDECARENONE
  11. HYDROXCHLOROQUINE [Suspect]
     Active Substance: HYDROXYCHLOROQUINE
     Indication: MUSCLE SPASMS
     Dosage: 200 MG, 1 PILL DAILY 1 DAILY, 1 PER DAY, BY MOUTH
     Route: 048
     Dates: start: 20141221, end: 20141226
  12. CALCIUM [Concomitant]
     Active Substance: CALCIUM

REACTIONS (2)
  - Nightmare [None]
  - Fatigue [None]

NARRATIVE: CASE EVENT DATE: 20141221
